FAERS Safety Report 25198541 (Version 1)
Quarter: 2025Q2

REPORT INFORMATION
  Report Type: Other
  Country: PL (occurrence: PL)
  Receive Date: 20250415
  Receipt Date: 20250415
  Transmission Date: 20250716
  Serious: Yes (Hospitalization, Other)
  Sender: Kanchan Healthcare
  Company Number: PL-Kanchan Healthcare INC-2174916

PATIENT
  Age: 29 Year
  Sex: Female
  Weight: 118 kg

DRUGS (3)
  1. BETAMETHASONE VALERATE [Suspect]
     Active Substance: BETAMETHASONE VALERATE
     Indication: Premature labour
  2. ATOSIBAN [Concomitant]
     Active Substance: ATOSIBAN
  3. Enoksaparin [Concomitant]

REACTIONS (3)
  - Gestational diabetes [Not Recovered/Not Resolved]
  - Product use in unapproved indication [Unknown]
  - Exposure during pregnancy [Unknown]
